FAERS Safety Report 7908897-5 (Version None)
Quarter: 2011Q4

REPORT INFORMATION
  Report Type: 
  Country: None (occurrence: None)
  Receive Date: 20111108
  Receipt Date: 20111028
  Transmission Date: 20120403
  Serious: Yes (Other)
  Sender: FDA-Public Use
  Company Number: 2011SP002368

PATIENT
  Age: 62 Year
  Sex: Female
  Weight: 79 kg

DRUGS (4)
  1. SIMVASTATIN [Concomitant]
  2. ORMIGREIN [Suspect]
     Indication: MIGRAINE
     Dates: start: 19640101, end: 20110701
  3. ACETAMINOPHEN [Suspect]
  4. DIPYRONE INJ [Concomitant]

REACTIONS (13)
  - DRUG DEPENDENCE [None]
  - ARTHROPATHY [None]
  - OVERDOSE [None]
  - HYPERCHOLESTEROLAEMIA [None]
  - TREATMENT NONCOMPLIANCE [None]
  - HEADACHE [None]
  - ASTHENIA [None]
  - FOOT FRACTURE [None]
  - DYSPNOEA [None]
  - VARICOSE VEIN [None]
  - BREAST MASS [None]
  - THROMBOSIS [None]
  - REPETITIVE STRAIN INJURY [None]
